FAERS Safety Report 9731797 (Version 2)
Quarter: 2013Q4

REPORT INFORMATION
  Report Type: Spontaneous
  Country: PH (occurrence: PH)
  Receive Date: 20131205
  Receipt Date: 20131205
  Transmission Date: 20140711
  Serious: Yes (Death)
  Sender: FDA-Public Use
  Company Number: PH-009507513-1305PHL015397

PATIENT
  Age: 78 Year
  Sex: Male

DRUGS (1)
  1. JANUMET [Suspect]
     Dosage: 1 DF, QD
     Dates: start: 20120817, end: 201304

REACTIONS (3)
  - Death [Fatal]
  - Intestinal haemorrhage [Unknown]
  - Drug intolerance [Unknown]
